FAERS Safety Report 9709700 (Version 2)
Quarter: 2013Q4

REPORT INFORMATION
  Report Type: Spontaneous
  Country: DE (occurrence: DE)
  Receive Date: 20131126
  Receipt Date: 20131206
  Transmission Date: 20140711
  Serious: Yes (Other)
  Sender: FDA-Public Use
  Company Number: DE-ASTRAZENECA-2013SE84971

PATIENT
  Sex: Male

DRUGS (2)
  1. MERONEM [Suspect]
     Route: 042
  2. CLARITHROMYCIN [Suspect]

REACTIONS (1)
  - Rhabdomyolysis [Unknown]
